FAERS Safety Report 21267267 (Version 1)
Quarter: 2022Q3

REPORT INFORMATION
  Report Type: Spontaneous
  Country: US (occurrence: None)
  Receive Date: 20220620
  Receipt Date: 20220620
  Transmission Date: 20221027
  Serious: Yes (unspecified)
  Sender: FDA-Public Use
  Company Number: None

PATIENT
  Age: 39 Year
  Sex: Female
  Weight: 78.47 kg

DRUGS (3)
  1. GADOLINIUM [Suspect]
     Active Substance: GADOLINIUM
  2. UNSPECIFIED INGREDIENT [Suspect]
     Active Substance: UNSPECIFIED INGREDIENT
  3. GADOLINIUM [Suspect]
     Active Substance: GADOLINIUM

REACTIONS (9)
  - Malaise [None]
  - Restless legs syndrome [None]
  - Ear discomfort [None]
  - Spinal pain [None]
  - Insomnia [None]
  - Sensory disturbance [None]
  - Crying [None]
  - Pollakiuria [None]
  - Temperature regulation disorder [None]

NARRATIVE: CASE EVENT DATE: 20220527
